FAERS Safety Report 10085739 (Version 2)
Quarter: 2014Q2

REPORT INFORMATION
  Report Type: Report from Study
  Country: US (occurrence: US)
  Receive Date: 20140418
  Receipt Date: 20140612
  Transmission Date: 20141212
  Serious: Yes (Hospitalization)
  Sender: FDA-Public Use
  Company Number: US-JNJFOC-20140406756

PATIENT
  Age: 89 Year
  Sex: Female
  Weight: 52.3 kg

DRUGS (3)
  1. XARELTO [Suspect]
     Indication: CEREBROVASCULAR ACCIDENT PROPHYLAXIS
     Route: 048
     Dates: start: 20131017, end: 20140110
  2. XARELTO [Suspect]
     Indication: ATRIAL FIBRILLATION
     Route: 048
     Dates: start: 20131017, end: 20140110
  3. XARELTO [Suspect]
     Indication: ANTICOAGULANT THERAPY
     Route: 048
     Dates: start: 20131017, end: 20140110

REACTIONS (5)
  - Epistaxis [Recovered/Resolved]
  - Fall [Unknown]
  - Facial bones fracture [Unknown]
  - Swelling [Unknown]
  - Ecchymosis [Unknown]
